FAERS Safety Report 7007403-X (Version None)
Quarter: 2010Q3

REPORT INFORMATION
  Report Type: 
  Country: None (occurrence: None)
  Receive Date: 20100922
  Receipt Date: 20100909
  Transmission Date: 20110219
  Serious: Yes (Other)
  Sender: FDA-Public Use
  Company Number: PHHY2010JP59790

PATIENT
  Age: 69 Year
  Sex: Male

DRUGS (2)
  1. FLUVASTATIN [Suspect]
     Route: 048
  2. DIOVAN [Suspect]
     Route: 048

REACTIONS (1)
  - DEMENTIA [None]
